FAERS Safety Report 11989345 (Version 1)
Quarter: 2016Q1

REPORT INFORMATION
  Report Type: Spontaneous
  Country: DE (occurrence: DE)
  Receive Date: 20160202
  Receipt Date: 20160202
  Transmission Date: 20160526
  Serious: Yes (Death, Other)
  Sender: FDA-Public Use
  Company Number: DE-TEVA-627925GER

PATIENT
  Age: 93 Year
  Sex: Female

DRUGS (4)
  1. FENTANYL-RATIOPHARM SCHMERZPFLASTER [Suspect]
     Active Substance: FENTANYL
     Dosage: 25 MCG/H
     Route: 062
  2. NOVAMINSULFON-RATIOPHARM 500 MG/ML TROPFEN [Interacting]
     Active Substance: METAMIZOLE
     Indication: PAIN
     Dosage: 120 GTT DAILY; 120 GTT EQUALS 3G, POSSIBLY EVEN MORE ADMINISTERED
     Route: 048
     Dates: start: 20151230
  3. TORASEMID-HEXAL [Concomitant]
     Dosage: 2 DOSAGE FORMS DAILY;
     Route: 048
  4. METOHEXAL [Interacting]
     Active Substance: METOPROLOL SUCCINATE
     Dosage: .25 DOSAGE FORMS DAILY; 1 DF = 95 MG METOPROLOL
     Route: 048

REACTIONS (19)
  - Anaphylactic shock [Fatal]
  - Vomiting [Unknown]
  - Visual impairment [Unknown]
  - Tinnitus [Unknown]
  - Nausea [Unknown]
  - Dizziness [Unknown]
  - Drug diversion [Unknown]
  - Respiratory distress [Not Recovered/Not Resolved]
  - Overdose [Unknown]
  - Cardiovascular disorder [Unknown]
  - Drug interaction [Unknown]
  - Oropharyngeal pain [Unknown]
  - Hyperhidrosis [Not Recovered/Not Resolved]
  - Leukopenia [Unknown]
  - Chest discomfort [Unknown]
  - Hypotension [Unknown]
  - Petechiae [Unknown]
  - Dry mouth [Unknown]
  - Oedema peripheral [Unknown]

NARRATIVE: CASE EVENT DATE: 20151230
